FAERS Safety Report 13699535 (Version 2)
Quarter: 2017Q3

REPORT INFORMATION
  Report Type: Report from Study
  Country: None (occurrence: DE)
  Receive Date: 20170629
  Receipt Date: 20170712
  Transmission Date: 20171127
  Serious: Yes (Hospitalization)
  Sender: FDA-Public Use
  Company Number: DE-ABBVIE-17P-062-2019965-00

PATIENT
  Age: 73 Year
  Sex: Male
  Weight: 74 kg

DRUGS (1)
  1. DUODOPA [Suspect]
     Active Substance: CARBIDOPA\LEVODOPA
     Indication: PARKINSON^S DISEASE
     Dosage: MD: 9.5ML; CRD: 2.3ML/H; ED: 1.5ML?CRD WAS FROM 7 AM TO 10 PM
     Route: 050
     Dates: start: 20140403

REACTIONS (5)
  - Restlessness [Unknown]
  - Chest pain [Unknown]
  - Personality change [Unknown]
  - Hallucination [Recovering/Resolving]
  - Aggression [Unknown]

NARRATIVE: CASE EVENT DATE: 20170623
